FAERS Safety Report 25833039 (Version 1)
Quarter: 2025Q3

REPORT INFORMATION
  Report Type: Spontaneous
  Country: US (occurrence: US)
  Receive Date: 20250922
  Receipt Date: 20250922
  Transmission Date: 20251020
  Serious: No
  Sender: ALEXION PHARMACEUTICALS
  Company Number: US-AstraZeneca-CH-00954061A

PATIENT
  Sex: Female

DRUGS (3)
  1. TRUQAP [Suspect]
     Active Substance: CAPIVASERTIB
     Route: 065
  2. FASLODEX [Suspect]
     Active Substance: FULVESTRANT
     Route: 065
  3. FASLODEX [Suspect]
     Active Substance: FULVESTRANT

REACTIONS (5)
  - Diarrhoea [Unknown]
  - Rash [Recovered/Resolved]
  - Pruritus [Unknown]
  - Hypertension [Unknown]
  - Arthralgia [Unknown]
